FAERS Safety Report 8922052 (Version 1)
Quarter: 2012Q4

REPORT INFORMATION
  Report Type: 
  Country: BR (occurrence: BR)
  Receive Date: 20121126
  Receipt Date: 20121126
  Transmission Date: 20130627
  Serious: Yes (Other)
  Sender: FDA-Public Use
  Company Number: BR-BAYER-2012-120540

PATIENT
  Age: 28 Year
  Sex: Female

DRUGS (2)
  1. BETAFERON [Suspect]
     Indication: RELAPSING-REMITTING MULTIPLE SCLEROSIS
     Dosage: 8 miu, QOD
     Route: 058
     Dates: start: 20120725
  2. TYLENOL [PARACETAMOL] [Concomitant]
     Indication: PREMEDICATION
     Dosage: 1 DF, PRN
     Route: 048
     Dates: start: 20120725

REACTIONS (5)
  - Chest pain [Recovered/Resolved]
  - Dyspnoea [Recovered/Resolved]
  - Pneumonitis [Not Recovered/Not Resolved]
  - Lung infection [None]
  - Pulmonary embolism [None]
